FAERS Safety Report 8838487 (Version 5)
Quarter: 2013Q3

REPORT INFORMATION
  Report Type: Report from Study
  Country: FR (occurrence: FR)
  Receive Date: 20121012
  Receipt Date: 20130712
  Transmission Date: 20140515
  Serious: Yes (Hospitalization)
  Sender: FDA-Public Use
  Company Number: FR-ROCHE-1118735

PATIENT
  Age: 57 Year
  Sex: Male
  Weight: 43 kg

DRUGS (18)
  1. BEVACIZUMAB [Suspect]
     Indication: NON-SMALL CELL LUNG CANCER
     Dosage: LAST DOSE 725MG
     Route: 042
     Dates: start: 20120702, end: 20120814
  2. PACLITAXEL [Suspect]
     Indication: NON-SMALL CELL LUNG CANCER
     Dosage: LAST DOSE 315MG
     Route: 042
     Dates: start: 20120702, end: 20120714
  3. CARBOPLATIN [Suspect]
     Indication: NON-SMALL CELL LUNG CANCER
     Dosage: LAST DOSE 535MG
     Route: 042
     Dates: start: 20120702, end: 20120814
  4. VENLAFAXINE [Concomitant]
     Indication: DEPRESSION
     Route: 048
  5. LIPANTHYL [Concomitant]
     Indication: DYSLIPIDAEMIA
     Route: 048
  6. OXAZEPAM [Concomitant]
     Indication: ANXIETY
     Route: 048
  7. PRAZEPAM [Concomitant]
     Indication: ANXIETY
     Route: 048
  8. LAMOTRIGINE [Concomitant]
     Indication: EPILEPSY
     Route: 048
  9. CETORNAN [Concomitant]
     Dosage: INDICATION: NUTRITIVE ADJUVANT
     Route: 048
     Dates: start: 20120725
  10. INEXIUM [Concomitant]
     Indication: ABDOMINAL PAIN UPPER
     Route: 048
     Dates: start: 20120815
  11. DIOSMECTITE [Concomitant]
     Indication: DIARRHOEA
     Dosage: REPORTED AS DIOMECTITIE
     Route: 048
     Dates: start: 20120709, end: 201207
  12. ZANIDIP [Concomitant]
     Indication: HYPERTENSION
     Route: 048
     Dates: start: 20120709, end: 201207
  13. SOLUPRED (FRANCE) [Concomitant]
     Route: 048
     Dates: start: 20120813, end: 20120814
  14. PARACETAMOL [Concomitant]
     Indication: PAIN
     Route: 048
     Dates: start: 20120815, end: 201208
  15. SERESTA [Concomitant]
     Route: 065
  16. DOLIPRANE [Concomitant]
     Route: 065
  17. DIFFU K [Concomitant]
     Route: 065
  18. PLACEBO [Suspect]
     Indication: NON-SMALL CELL LUNG CANCER
     Dosage: DATE OF THE MOST RECENT DOSE: 14/AUG/2012
     Route: 042
     Dates: start: 20120702

REACTIONS (2)
  - Lung abscess [Recovered/Resolved]
  - Device related infection [Recovered/Resolved]
